FAERS Safety Report 5082217-9 (Version None)
Quarter: 2006Q3

REPORT INFORMATION
  Report Type: 
  Country: None (occurrence: None)
  Receive Date: 20060817
  Receipt Date: 20060719
  Transmission Date: 20061208
  Serious: Yes (Hospitalization)
  Sender: FDA-Public Use
  Company Number: US-AVENTIS-200617594GDDC

PATIENT
  Age: 80 Year
  Sex: Male

DRUGS (5)
  1. TAXOTERE [Suspect]
     Indication: NON-SMALL CELL LUNG CANCER
     Route: 042
     Dates: start: 20060614, end: 20060614
  2. CARBOPLATIN [Suspect]
     Indication: NON-SMALL CELL LUNG CANCER
     Route: 042
     Dates: start: 20060614, end: 20060614
  3. CONTRAST MEDIA [Suspect]
     Indication: COMPUTERISED TOMOGRAM
     Dates: start: 20060627, end: 20060627
  4. SPIRIVA [Concomitant]
     Dosage: DOSE: UNK
  5. ALBUTEROL [Concomitant]
     Dosage: DOSE: UNK

REACTIONS (2)
  - ANAEMIA [None]
  - RENAL FAILURE ACUTE [None]
